FAERS Safety Report 6179441-0 (Version None)
Quarter: 2009Q2

REPORT INFORMATION
  Report Type: 
  Country: None (occurrence: None)
  Receive Date: 20090505
  Receipt Date: 20090427
  Transmission Date: 20091009
  Serious: Yes (Hospitalization)
  Sender: FDA-Public Use
  Company Number: B0572762A

PATIENT
  Age: 2 Year
  Sex: Female

DRUGS (1)
  1. AUGMENTIN '125' [Suspect]
     Indication: IMPETIGO
     Route: 048
     Dates: start: 20081006, end: 20081016

REACTIONS (3)
  - EYELID OEDEMA [None]
  - PRURITUS [None]
  - RASH MACULO-PAPULAR [None]
